FAERS Safety Report 16807725 (Version 1)
Quarter: 2019Q3

REPORT INFORMATION
  Report Type: Spontaneous
  Country: US (occurrence: US)
  Receive Date: 20190915
  Receipt Date: 20190915
  Transmission Date: 20191005
  Serious: No
  Sender: FDA-Public Use
  Company Number: US-ASTRAZENECA-2019SF28677

PATIENT
  Sex: Female

DRUGS (3)
  1. NITROGYLCERINE [Concomitant]
     Indication: ANGINA PECTORIS
  2. METOPROLOL. [Suspect]
     Active Substance: METOPROLOL
     Indication: ANGINA PECTORIS
     Route: 065
  3. BYDUREON BCISE [Suspect]
     Active Substance: EXENATIDE
     Indication: DIABETES MELLITUS
     Route: 058

REACTIONS (3)
  - Blood glucose increased [Unknown]
  - Device leakage [Unknown]
  - Incorrect dose administered by device [Unknown]
